FAERS Safety Report 4673056-9 (Version None)
Quarter: 2005Q2

REPORT INFORMATION
  Report Type: 
  Country: None (occurrence: None)
  Receive Date: 20050523
  Receipt Date: 20001106
  Transmission Date: 20051028
  Serious: Yes (Hospitalization)
  Sender: FDA-Public Use
  Company Number: 2000-00542

PATIENT
  Age: 29 Year
  Sex: Male
  Weight: 62 kg

DRUGS (15)
  1. DAUNOXOME [Suspect]
     Indication: KAPOSI'S SARCOMA
     Dosage: INTRAVENOUS
     Dates: start: 19951117
  2. BACTRIM [Concomitant]
  3. METOCLOPRAMIDE [Concomitant]
  4. OMEPRAZOLE [Concomitant]
  5. LOPERAMIDE [Concomitant]
  6. ALUMINUM AND MAGNES (ALUMINUM MAGNESIUM SILICATE) [Concomitant]
  7. ACYCLOVIR [Concomitant]
  8. FLUCONAZOLE [Concomitant]
  9. MORPHINE SULFATE [Concomitant]
  10. CYCLIZINE HYDROCHLORIDE [Concomitant]
  11. CODEINE PHOSPHATE [Concomitant]
  12. TETRACYCLINE HYDROCH [Concomitant]
  13. ZIDOVUDINE [Concomitant]
  14. LAMIVUDINE [Concomitant]
  15. ALBENDAZOLE [Concomitant]

REACTIONS (4)
  - CONDITION AGGRAVATED [None]
  - DEPRESSION [None]
  - DIARRHOEA [None]
  - PROSTATIC DISORDER [None]
